FAERS Safety Report 4555704-7 (Version None)
Quarter: 2005Q1

REPORT INFORMATION
  Report Type: 
  Country: None (occurrence: None)
  Receive Date: 20050119
  Receipt Date: 20050107
  Transmission Date: 20050727
  Serious: Yes (Hospitalization)
  Sender: FDA-Public Use
  Company Number: FR-JNJFOC-20050102437

PATIENT
  Age: 65 Year
  Sex: Female

DRUGS (21)
  1. TOPALGIC [Suspect]
     Indication: SCIATICA
     Route: 065
  2. KETOPROFEN [Suspect]
     Indication: DRUG USE FOR UNKNOWN INDICATION
     Route: 049
  3. TERCIAN [Suspect]
     Indication: DRUG USE FOR UNKNOWN INDICATION
     Route: 049
  4. NOCTAMIDE [Suspect]
     Indication: DRUG USE FOR UNKNOWN INDICATION
     Route: 049
  5. APROVEL [Suspect]
     Indication: DRUG USE FOR UNKNOWN INDICATION
     Route: 049
  6. LERCAN [Suspect]
     Indication: DRUG USE FOR UNKNOWN INDICATION
     Route: 049
  7. SKENAN [Suspect]
     Route: 049
  8. SKENAN [Suspect]
     Indication: DRUG USE FOR UNKNOWN INDICATION
     Route: 049
  9. PERFALGAN [Concomitant]
     Route: 042
  10. CLONAZEPAM [Concomitant]
     Route: 065
  11. BISOPROLOL FUMARATE [Concomitant]
     Route: 065
  12. MYOLASTAN [Concomitant]
     Route: 065
  13. URBANYL [Concomitant]
     Route: 065
  14. LEVOTHYROX [Concomitant]
     Route: 065
  15. DITROPAN [Concomitant]
     Route: 065
  16. NEURONTIN [Concomitant]
     Route: 065
  17. ALDALIX [Concomitant]
     Route: 065
  18. ALDALIX [Concomitant]
     Route: 065
  19. LOVENOX [Concomitant]
     Route: 058
  20. MOPRAL [Concomitant]
     Route: 065
  21. AMITRIPTYLINE HCL [Concomitant]
     Route: 065

REACTIONS (12)
  - BRADYCARDIA [None]
  - BRADYPNOEA [None]
  - HYPERHIDROSIS [None]
  - HYPERKALAEMIA [None]
  - HYPOTENSION [None]
  - MALAISE [None]
  - MIOSIS [None]
  - OBSTRUCTIVE AIRWAYS DISORDER [None]
  - RENAL FAILURE [None]
  - RENAL FAILURE ACUTE [None]
  - SINUS BRADYCARDIA [None]
  - SOMNOLENCE [None]
